FAERS Safety Report 4886081-X (Version None)
Quarter: 2006Q1

REPORT INFORMATION
  Report Type: 
  Country: None (occurrence: None)
  Receive Date: 20060118
  Receipt Date: 20060118
  Transmission Date: 20060701
  Serious: Yes (Hospitalization, Other)
  Sender: FDA-Public Use
  Company Number: None

PATIENT
  Sex: Male
  Weight: 90.5 kg

DRUGS (2)
  1. METHOTREXATE [Suspect]
     Indication: HAEMATOPOIETIC NEOPLASM
     Dosage: SEE IMAGE
     Dates: start: 20041014, end: 20041024
  2. METHOTREXATE [Suspect]
     Indication: HAEMATOPOIETIC NEOPLASM
     Dosage: SEE IMAGE
     Dates: start: 20051106

REACTIONS (11)
  - ALANINE AMINOTRANSFERASE INCREASED [None]
  - BLOOD BILIRUBIN INCREASED [None]
  - BLOOD GLUCOSE INCREASED [None]
  - BLOOD POTASSIUM INCREASED [None]
  - BLOOD SODIUM DECREASED [None]
  - BLOOD UREA INCREASED [None]
  - GLUCOSE URINE PRESENT [None]
  - PLATELET COUNT DECREASED [None]
  - POLYDIPSIA [None]
  - POLYURIA [None]
  - RETICULOCYTE COUNT INCREASED [None]
